FAERS Safety Report 19001689 (Version 4)
Quarter: 2021Q2

REPORT INFORMATION
  Report Type: Spontaneous
  Country: US (occurrence: US)
  Receive Date: 20210312
  Receipt Date: 20210426
  Transmission Date: 20210717
  Serious: Yes (Other)
  Sender: FDA-Public Use
  Company Number: US-HIKMA PHARMACEUTICALS USA INC.-US-H14001-21-01018

PATIENT
  Sex: Female
  Weight: 86.2 kg

DRUGS (13)
  1. TREPROSTINIL. [Suspect]
     Active Substance: TREPROSTINIL
     Route: 048
  2. REMODULIN [Suspect]
     Active Substance: TREPROSTINIL
     Indication: PULMONARY ARTERIAL HYPERTENSION
     Route: 058
     Dates: start: 20210319
  3. ADCIRCA [Concomitant]
     Active Substance: TADALAFIL
     Indication: PRODUCT USED FOR UNKNOWN INDICATION
     Dosage: UNKNOWN
     Route: 065
  4. CAFFEINE. [Suspect]
     Active Substance: CAFFEINE
     Indication: PRODUCT USED FOR UNKNOWN INDICATION
     Dosage: UNKNOWN
     Route: 065
  5. ORENITRAM [Suspect]
     Active Substance: TREPROSTINIL
     Dosage: UNKNOWN
     Route: 048
  6. REMODULIN [Suspect]
     Active Substance: TREPROSTINIL
     Indication: PULMONARY ARTERIAL HYPERTENSION
     Dosage: UNKNOWN
     Route: 042
     Dates: start: 20210205
  7. REMODULIN [Suspect]
     Active Substance: TREPROSTINIL
     Route: 042
  8. TREPROSTINIL. [Suspect]
     Active Substance: TREPROSTINIL
     Indication: PULMONARY ARTERIAL HYPERTENSION
     Dosage: UNKNOWN
     Route: 048
     Dates: start: 20161024
  9. ORENITRAM [Suspect]
     Active Substance: TREPROSTINIL
     Dosage: UNKNOWN
     Route: 048
  10. COUMADIN [Concomitant]
     Active Substance: WARFARIN SODIUM
     Indication: PRODUCT USED FOR UNKNOWN INDICATION
     Dosage: UNKNOWN
     Route: 065
  11. LETAIRIS [Concomitant]
     Active Substance: AMBRISENTAN
     Indication: PRODUCT USED FOR UNKNOWN INDICATION
     Dosage: UNKNOWN
     Route: 065
  12. ORENITRAM [Suspect]
     Active Substance: TREPROSTINIL
     Indication: PULMONARY ARTERIAL HYPERTENSION
     Dosage: UNKNOWN
     Route: 048
  13. REMODULIN [Suspect]
     Active Substance: TREPROSTINIL
     Route: 042

REACTIONS (19)
  - Erythema [Unknown]
  - Infusion site pain [Unknown]
  - Dyspnoea [Unknown]
  - Dermatitis contact [Recovered/Resolved]
  - Pruritus [Unknown]
  - Injection site discharge [Unknown]
  - Vascular device infection [Unknown]
  - Palpitations [Unknown]
  - Arthralgia [Unknown]
  - Dry skin [Unknown]
  - Injection site pain [Unknown]
  - Pulmonary arterial pressure increased [Unknown]
  - Chest discomfort [Unknown]
  - Blister [Unknown]
  - Diarrhoea [Unknown]
  - Fatigue [Unknown]
  - Bendopnoea [Unknown]
  - Fungal infection [Recovered/Resolved]
  - Injection site erythema [Unknown]

NARRATIVE: CASE EVENT DATE: 2021
